FAERS Safety Report 16522381 (Version 2)
Quarter: 2019Q3

REPORT INFORMATION
  Report Type: Spontaneous
  Country: US (occurrence: US)
  Receive Date: 20190703
  Receipt Date: 20190711
  Transmission Date: 20191004
  Serious: No
  Sender: FDA-Public Use
  Company Number: US-PFIZER INC-2019280191

PATIENT
  Age: 61 Year
  Sex: Female
  Weight: 68.49 kg

DRUGS (2)
  1. ADVIL LIQUI-GELS [Suspect]
     Active Substance: IBUPROFEN
     Indication: ARTHRITIS
     Dosage: TWO CAPSULES IN THE MORNING AND TWO CAPSULES AT NIGHT
     Route: 048
     Dates: start: 20190613, end: 20190622
  2. FLAGYL [Suspect]
     Active Substance: METRONIDAZOLE\METRONIDAZOLE HYDROCHLORIDE
     Indication: IRRITABLE BOWEL SYNDROME
     Dosage: ONE TABLET EVERY EIGHT HOURS
     Route: 048
     Dates: start: 20190615

REACTIONS (3)
  - Nausea [Recovering/Resolving]
  - Diarrhoea [Recovering/Resolving]
  - Malaise [Recovering/Resolving]

NARRATIVE: CASE EVENT DATE: 20190614
